FAERS Safety Report 9186269 (Version 1)
Quarter: 2013Q1

REPORT INFORMATION
  Report Type: Report from Study
  Country: PL (occurrence: PL)
  Receive Date: 20130325
  Receipt Date: 20130325
  Transmission Date: 20140127
  Serious: Yes (Hospitalization)
  Sender: FDA-Public Use
  Company Number: PL-ASTRAZENECA-2013SE17869

PATIENT
  Age: 21302 Day
  Sex: Male

DRUGS (6)
  1. AZD6140 [Suspect]
     Indication: CORONARY ARTERY DISEASE
     Route: 048
     Dates: start: 20110622
  2. ASA [Concomitant]
     Route: 048
  3. ATORVASTEROL [Concomitant]
     Indication: PROPHYLAXIS
     Route: 048
  4. BISOCARD [Concomitant]
     Indication: PROPHYLAXIS
     Route: 048
  5. TRITACE [Concomitant]
     Indication: PROPHYLAXIS
     Route: 048
  6. EFFOX LONG [Concomitant]
     Indication: ANGINA PECTORIS
     Route: 048
     Dates: start: 20120229

REACTIONS (1)
  - Gastric ulcer [Recovered/Resolved]
